FAERS Safety Report 7898145-7 (Version None)
Quarter: 2011Q4

REPORT INFORMATION
  Report Type: 
  Country: None (occurrence: None)
  Receive Date: 20111107
  Receipt Date: 20111027
  Transmission Date: 20120403
  Serious: Yes (Hospitalization, Disabling, Other)
  Sender: FDA-Public Use
  Company Number: US-MERCK-1103USA03953

PATIENT
  Age: 65 Year
  Sex: Female
  Weight: 70 kg

DRUGS (6)
  1. FOSAMAX PLUS D [Suspect]
     Indication: OSTEOPOROSIS
     Route: 048
     Dates: start: 20040101, end: 20080101
  2. FOSAMAX [Suspect]
     Route: 048
     Dates: start: 20000606, end: 20020909
  3. FOSAMAX [Suspect]
     Indication: OSTEOPOROSIS
     Route: 048
     Dates: start: 19990924, end: 20080101
  4. FOSAMAX [Suspect]
     Route: 048
     Dates: start: 20020909, end: 20080101
  5. CALCIUM CITRATE AND VITAMIN D (UNSPECIFIED) [Concomitant]
     Route: 065
  6. VITAMINS (UNSPECIFIED) [Concomitant]
     Route: 065

REACTIONS (35)
  - HYPERTENSIVE HEART DISEASE [None]
  - GASTROOESOPHAGEAL REFLUX DISEASE [None]
  - CHRONIC OBSTRUCTIVE PULMONARY DISEASE [None]
  - ANAEMIA OF CHRONIC DISEASE [None]
  - BLOOD CREATININE INCREASED [None]
  - HYPOTHYROIDISM [None]
  - VARICOSE VEIN [None]
  - RENAL FAILURE CHRONIC [None]
  - FEMUR FRACTURE [None]
  - BLOOD DISORDER [None]
  - HIP FRACTURE [None]
  - HIATUS HERNIA [None]
  - FIBROCYSTIC BREAST DISEASE [None]
  - ACQUIRED OESOPHAGEAL WEB [None]
  - OSTEOARTHRITIS [None]
  - HYPERGAMMAGLOBULINAEMIA BENIGN MONOCLONAL [None]
  - FATIGUE [None]
  - BACK PAIN [None]
  - MALAISE [None]
  - DYSPNOEA EXERTIONAL [None]
  - COLONIC POLYP [None]
  - BURSITIS [None]
  - CHEST DISCOMFORT [None]
  - LUMBAR VERTEBRAL FRACTURE [None]
  - DIVERTICULUM INTESTINAL [None]
  - POLYARTHRITIS [None]
  - RENAL FAILURE [None]
  - HYPERLIPIDAEMIA [None]
  - HYPERGLYCAEMIA [None]
  - ARTHROPATHY [None]
  - BODY HEIGHT DECREASED [None]
  - EMPHYSEMA [None]
  - STASIS DERMATITIS [None]
  - ARTHRALGIA [None]
  - AMNESIA [None]
